FAERS Safety Report 13418691 (Version 1)
Quarter: 2017Q2

REPORT INFORMATION
  Report Type: Spontaneous
  Country: GB (occurrence: GB)
  Receive Date: 20170406
  Receipt Date: 20170406
  Transmission Date: 20170830
  Serious: Yes (Other)
  Sender: FDA-Public Use
  Company Number: GB-INTERNATIONAL MEDICATION SYSTEMS, LIMITED-1065125

PATIENT
  Age: 65 Year
  Sex: Female

DRUGS (18)
  1. CALCICHEW [Concomitant]
     Active Substance: CALCIUM CARBONATE
  2. RED BLOOD CELLS [Concomitant]
     Active Substance: HUMAN RED BLOOD CELL
  3. SIMVASTATIN. [Concomitant]
     Active Substance: SIMVASTATIN
  4. CINACALCET [Concomitant]
     Active Substance: CINACALCET
  5. CLARITHROMYCIN. [Concomitant]
     Active Substance: CLARITHROMYCIN
  6. RENAVIT [Concomitant]
  7. SODIUM BICARBONATE. [Suspect]
     Active Substance: SODIUM BICARBONATE
     Indication: HAEMODIALYSIS
     Route: 010
  8. SODIUM CHLORIDE. [Suspect]
     Active Substance: SODIUM CHLORIDE
     Route: 010
  9. NEORECORMON [Concomitant]
     Active Substance: ERYTHROPOIETIN
  10. EZETIMIBE. [Concomitant]
     Active Substance: EZETIMIBE
  11. FELODIPINE. [Concomitant]
     Active Substance: FELODIPINE
  12. PARACETAMOL [Concomitant]
     Active Substance: ACETAMINOPHEN
  13. PENICILLIUM [Concomitant]
     Active Substance: PENICILLIUM CHRYSOGENUM VAR. CHRYSOGENUM
  14. BISOPROLOL [Concomitant]
     Active Substance: BISOPROLOL
  15. COLECALCIFEROL [Concomitant]
     Active Substance: CHOLECALCIFEROL
  16. RAMIPRIL. [Concomitant]
     Active Substance: RAMIPRIL
  17. AMLODIPINE [Concomitant]
     Active Substance: AMLODIPINE BESYLATE
  18. FUROSEMIDE. [Concomitant]
     Active Substance: FUROSEMIDE

REACTIONS (2)
  - Anaemia [Unknown]
  - Haemolysis [Unknown]
